FAERS Safety Report 9065835 (Version 1)
Quarter: 2013Q1

REPORT INFORMATION
  Report Type: Spontaneous
  Country: US (occurrence: US)
  Receive Date: 20130131
  Receipt Date: 20130131
  Transmission Date: 20140127
  Serious: No
  Sender: FDA-Public Use
  Company Number: US-ABBOTT-12P-163-1017303-00

PATIENT
  Age: 54 None
  Sex: Male

DRUGS (9)
  1. HUMIRA [Suspect]
     Indication: RHEUMATOID ARTHRITIS
     Route: 058
     Dates: start: 201207
  2. PREDNISONE [Concomitant]
     Indication: RHEUMATOID ARTHRITIS
  3. METHOTREXATE [Concomitant]
     Indication: RHEUMATOID ARTHRITIS
  4. FOLIC ACID [Concomitant]
     Indication: VITAMIN SUPPLEMENTATION
  5. MULTIVITAMIN [Concomitant]
     Indication: ROUTINE HEALTH MAINTENANCE
  6. UNKNOWN MEDICATIONS [Concomitant]
     Indication: GASTROOESOPHAGEAL REFLUX DISEASE
  7. UNKNOWN MEDICATIONS [Concomitant]
     Indication: HYPERTENSION
  8. UNKNOWN MEDICATIONS [Concomitant]
     Indication: ANXIETY
  9. UNKNOWN MEDICATIONS [Concomitant]
     Indication: DEPRESSION

REACTIONS (2)
  - Incorrect dose administered [Unknown]
  - Injection site pain [Not Recovered/Not Resolved]
